FAERS Safety Report 12561979 (Version 3)
Quarter: 2016Q3

REPORT INFORMATION
  Report Type: Spontaneous
  Country: ES (occurrence: ES)
  Receive Date: 20160715
  Receipt Date: 20160804
  Transmission Date: 20161109
  Serious: Yes (Other)
  Sender: FDA-Public Use
  Company Number: ES-009507513-1607ESP006893

PATIENT
  Sex: Female

DRUGS (1)
  1. TIENAM I.V. 500 MG [Suspect]
     Active Substance: CILASTATIN SODIUM\IMIPENEM
     Indication: ABDOMINAL SEPSIS
     Dosage: 1 G, Q8H
     Dates: start: 2010, end: 2010

REACTIONS (3)
  - Overdose [Unknown]
  - Status epilepticus [Recovered/Resolved]
  - Respiratory arrest [Recovered/Resolved]

NARRATIVE: CASE EVENT DATE: 2010
